FAERS Safety Report 26055430 (Version 1)
Quarter: 2025Q4

REPORT INFORMATION
  Report Type: Spontaneous
  Country: US (occurrence: US)
  Receive Date: 20251117
  Receipt Date: 20251117
  Transmission Date: 20260117
  Serious: Yes (Other)
  Sender: INTRA-CELLULAR THERAPIES
  Company Number: US-INTRA-CELLULAR THERAPIES, INC.-2025ICT02687

PATIENT
  Sex: Female

DRUGS (1)
  1. CAPLYTA [Suspect]
     Active Substance: LUMATEPERONE
     Indication: Bipolar disorder
     Dosage: UNK

REACTIONS (6)
  - Hallucination, visual [Unknown]
  - Feeling abnormal [Unknown]
  - Disorientation [Unknown]
  - Insomnia [Unknown]
  - Paranoia [Unknown]
  - Dizziness [Unknown]
